FAERS Safety Report 4580437-0 (Version None)
Quarter: 2005Q1

REPORT INFORMATION
  Report Type: 
  Country: None (occurrence: None)
  Receive Date: 20050214
  Receipt Date: 20040123
  Transmission Date: 20050727
  Serious: No
  Sender: FDA-Public Use
  Company Number: US-GLAXOSMITHKLINE-A0495036A

PATIENT
  Age: 47 Year
  Sex: Female

DRUGS (3)
  1. LAMICTAL [Suspect]
     Indication: BIPOLAR DISORDER
     Dosage: 25MG PER DAY
     Route: 048
     Dates: start: 20031001
  2. DEPAKOTE [Concomitant]
  3. SYNTHROID [Concomitant]
     Route: 065

REACTIONS (5)
  - CONSTIPATION [None]
  - ELEVATED MOOD [None]
  - HYPOAESTHESIA [None]
  - MANIA [None]
  - NAUSEA [None]
